FAERS Safety Report 4474823-7 (Version None)
Quarter: 2004Q4

REPORT INFORMATION
  Report Type: 
  Country: None (occurrence: None)
  Receive Date: 20041014
  Receipt Date: 20041011
  Transmission Date: 20050328
  Serious: Yes (Other)
  Sender: FDA-Public Use
  Company Number: GB-MERCK-0410GBR00108

PATIENT
  Age: 80 Year
  Sex: Female
  Weight: 52 kg

DRUGS (2)
  1. LEVOTHYROXINE SODIUM [Concomitant]
     Route: 048
     Dates: start: 20040601
  2. COZAAR [Suspect]
     Indication: CARDIAC FAILURE CONGESTIVE
     Route: 048
     Dates: start: 20040709, end: 20040820

REACTIONS (2)
  - DEPRESSION [None]
  - TEARFULNESS [None]
